FAERS Safety Report 6885443-9 (Version None)
Quarter: 2010Q3

REPORT INFORMATION
  Report Type: 
  Country: None (occurrence: None)
  Receive Date: 20100729
  Receipt Date: 20080428
  Transmission Date: 20110219
  Serious: No
  Sender: FDA-Public Use
  Company Number: US-PFIZER INC-2008024023

PATIENT
  Age: 64 Year
  Sex: Female
  Weight: 64.86 kg

DRUGS (2)
  1. CELEBREX [Suspect]
     Indication: BACK PAIN
     Route: 048
     Dates: start: 20080201
  2. FLECTOR [Suspect]
     Indication: BACK PAIN
     Route: 061
     Dates: start: 20080307, end: 20080309

REACTIONS (1)
  - MUSCLE SPASMS [None]
